FAERS Safety Report 4686329-0 (Version None)
Quarter: 2005Q2

REPORT INFORMATION
  Report Type: 
  Country: None (occurrence: None)
  Receive Date: 20050606
  Receipt Date: 20050524
  Transmission Date: 20051028
  Serious: Yes (Hospitalization, Other)
  Sender: FDA-Public Use
  Company Number: 2005079245

PATIENT
  Age: 77 Year
  Sex: Female
  Weight: 81.6475 kg

DRUGS (3)
  1. CELEBREX [Suspect]
     Indication: ARTHRALGIA
     Dosage: 400 MG (200 MG 2 IN 1 D) ORAL
     Route: 048
     Dates: start: 20030101, end: 20050201
  2. MAXZIDE 9HYDROXYCHLOROQUINE, TRIAMTERENE) [Concomitant]
  3. QUININE SULFATE [Concomitant]

REACTIONS (4)
  - ALOPECIA [None]
  - DEHYDRATION [None]
  - GASTRIC DISORDER [None]
  - VOMITING [None]
